FAERS Safety Report 6306845-5 (Version None)
Quarter: 2009Q3

REPORT INFORMATION
  Report Type: 
  Country: None (occurrence: None)
  Receive Date: 20090812
  Receipt Date: 20090801
  Transmission Date: 20100115
  Serious: Yes (Hospitalization)
  Sender: FDA-Public Use
  Company Number: US-PFIZER INC-2007015028

PATIENT
  Age: 69 Year
  Sex: Male
  Weight: 81.1 kg

DRUGS (16)
  1. BLINDED SUNITINIB MALATE [Suspect]
     Indication: RENAL CELL CARCINOMA
     Dosage: UNK
     Route: 048
     Dates: start: 20061213, end: 20070101
  2. CLONIDINE [Suspect]
  3. COZAAR [Suspect]
  4. LASIX [Suspect]
  5. MICARDIS [Suspect]
  6. TOPROL-XL [Suspect]
  7. TAMSULOSIN [Suspect]
  8. AMBIEN [Concomitant]
  9. ETANERCEPT [Concomitant]
  10. GLIPIZIDE [Concomitant]
  11. HYDROCODONE [Concomitant]
  12. LEXAPRO [Concomitant]
  13. LIPITOR [Concomitant]
  14. METFORMIN [Concomitant]
  15. NEXIUM [Concomitant]
  16. PREDNISONE [Concomitant]

REACTIONS (5)
  - FATIGUE [None]
  - HEADACHE [None]
  - HYPERTENSION [None]
  - HYPOTENSION [None]
  - MUCOSAL INFLAMMATION [None]
